FAERS Safety Report 4357096-5 (Version None)
Quarter: 2004Q2

REPORT INFORMATION
  Report Type: 
  Country: None (occurrence: None)
  Receive Date: 20040507
  Receipt Date: 20040427
  Transmission Date: 20050107
  Serious: Yes (Life-Threatening, Hospitalization)
  Sender: FDA-Public Use
  Company Number: GR-SHR-04-024932

PATIENT
  Age: 35 Year
  Sex: Female

DRUGS (3)
  1. YASMIN [Suspect]
     Indication: OVARIAN CYST
     Dosage: 1 TAB(S), 21D/28D, ORAL
     Route: 048
     Dates: start: 20040317, end: 20040318
  2. KETEK [Suspect]
     Indication: SINUSITIS
     Dosage: 400 MG , 1X/DAY
     Dates: start: 20040201, end: 20040301
  3. AUGMENTIN [Suspect]
     Indication: SINUSITIS
     Dates: start: 20030101

REACTIONS (6)
  - BLOOD FIBRINOGEN INCREASED [None]
  - FIBRIN D DIMER INCREASED [None]
  - HEPATIC NECROSIS [None]
  - HEPATITIS [None]
  - OVARIAN CYST [None]
  - PROTHROMBIN TIME PROLONGED [None]
